FAERS Safety Report 22395390 (Version 1)
Quarter: 2023Q2

REPORT INFORMATION
  Report Type: Spontaneous
  Country: ZA (occurrence: ZA)
  Receive Date: 20230601
  Receipt Date: 20230601
  Transmission Date: 20230722
  Serious: Yes (Other)
  Sender: FDA-Public Use
  Company Number: ZA-FreseniusKabi-FK202307207

PATIENT
  Age: 45 Year
  Sex: Female
  Weight: 102 kg

DRUGS (5)
  1. ACETAMINOPHEN [Suspect]
     Active Substance: ACETAMINOPHEN
     Indication: Procedural pain
     Dosage: 1 DOSE
     Route: 042
     Dates: start: 20230522, end: 20230522
  2. ACETAMINOPHEN\TRAMADOL [Concomitant]
     Active Substance: ACETAMINOPHEN\TRAMADOL
     Indication: Product used for unknown indication
     Dosage: 2 CAPS ORALLY/QID
     Route: 048
  3. LORNOXICAM [Concomitant]
     Active Substance: LORNOXICAM
     Indication: Procedural pain
     Dosage: ORAL/12HRLY
     Route: 048
  4. KYTRIL [Concomitant]
     Active Substance: GRANISETRON HYDROCHLORIDE
     Indication: Procedural nausea
     Dosage: IVI/BD
     Route: 040
  5. Sandoz co-amoxiclav [Concomitant]
     Indication: Product used for unknown indication
     Dosage: IVI/BD
     Route: 042

REACTIONS (3)
  - Visual impairment [Recovered/Resolved]
  - Eye disorder [Recovered/Resolved]
  - Ill-defined disorder [Recovered/Resolved]

NARRATIVE: CASE EVENT DATE: 20230522
